FAERS Safety Report 6841599-5 (Version None)
Quarter: 2010Q3

REPORT INFORMATION
  Report Type: 
  Country: None (occurrence: None)
  Receive Date: 20100714
  Receipt Date: 20070717
  Transmission Date: 20110219
  Serious: No
  Sender: FDA-Public Use
  Company Number: US-PFIZER INC-2007057785

PATIENT
  Sex: Male
  Weight: 111.36 kg

DRUGS (5)
  1. CHANTIX [Suspect]
     Indication: SMOKING CESSATION THERAPY
     Dates: start: 20070101
  2. WARFARIN SODIUM [Concomitant]
  3. ZOCOR [Concomitant]
  4. TRICOR [Concomitant]
  5. CARDIAC THERAPY [Concomitant]

REACTIONS (6)
  - DRUG DOSE OMISSION [None]
  - DRUG INEFFECTIVE [None]
  - DYSGEUSIA [None]
  - NASAL CONGESTION [None]
  - STRESS [None]
  - WEIGHT DECREASED [None]
